FAERS Safety Report 7022152-X (Version None)
Quarter: 2010Q3

REPORT INFORMATION
  Report Type: 
  Country: None (occurrence: None)
  Receive Date: 20100930
  Receipt Date: 20100921
  Transmission Date: 20110219
  Serious: Yes (Other)
  Sender: FDA-Public Use
  Company Number: PHHY2010US63094

PATIENT

DRUGS (1)
  1. EXELON [Suspect]
     Route: 062

REACTIONS (3)
  - CONFUSIONAL STATE [None]
  - DISORIENTATION [None]
  - WRONG TECHNIQUE IN DRUG USAGE PROCESS [None]
